FAERS Safety Report 4480931-7 (Version None)
Quarter: 2004Q3

REPORT INFORMATION
  Report Type: 
  Country: None (occurrence: None)
  Receive Date: 20040923
  Receipt Date: 20040603
  Transmission Date: 20050211
  Serious: No
  Sender: FDA-Public Use
  Company Number: USA040568535

PATIENT
  Age: 77 Year
  Sex: Female

DRUGS (7)
  1. FORTEO [Suspect]
     Indication: OSTEOPOROSIS
     Dates: start: 20030901
  2. SYNTHROID [Concomitant]
  3. CELEBREX [Concomitant]
  4. CALCIUM [Concomitant]
  5. POTASSIUM [Concomitant]
  6. BIOTIN [Concomitant]
  7. ALBUTEROL [Concomitant]

REACTIONS (3)
  - ASTHENIA [None]
  - FATIGUE [None]
  - INSOMNIA [None]
